FAERS Safety Report 9196904 (Version 1)
Quarter: 2013Q1

REPORT INFORMATION
  Report Type: Other
  Country: US (occurrence: US)
  Receive Date: 20130328
  Receipt Date: 20130328
  Transmission Date: 20140127
  Serious: Yes (Other)
  Sender: FDA-Public Use
  Company Number: US-SHIRE-ALL1-2013-01891

PATIENT
  Sex: Female
  Weight: 57.6 kg

DRUGS (1)
  1. ADDERALL XR [Suspect]
     Indication: SYNCOPE
     Dosage: 20 MG, 1X/DAY:QD
     Route: 048
     Dates: start: 20040205, end: 20040512

REACTIONS (6)
  - Lupus-like syndrome [Unknown]
  - Cyanosis [Recovering/Resolving]
  - Skin ulcer [Recovering/Resolving]
  - Decreased appetite [Recovered/Resolved]
  - Abdominal pain [Recovered/Resolved]
  - Off label use [Recovered/Resolved]
